FAERS Safety Report 12074052 (Version 1)
Quarter: 2016Q1

REPORT INFORMATION
  Report Type: Spontaneous
  Country: DK (occurrence: DK)
  Receive Date: 20160212
  Receipt Date: 20160212
  Transmission Date: 20160526
  Serious: Yes (Death, Hospitalization)
  Sender: FDA-Public Use
  Company Number: PHHY2016DK018547

PATIENT
  Age: 63 Year
  Sex: Female

DRUGS (11)
  1. SULFOTRIMIN [Concomitant]
     Indication: PROPHYLAXIS
     Route: 048
     Dates: start: 20150703
  2. AZITHROMYCIN ANHYDROUS. [Concomitant]
     Active Substance: AZITHROMYCIN ANHYDROUS
     Indication: NEUTROPHILIA
     Dosage: 500MG MONDAY, WEDNESDAY AND FRIDAY
     Route: 048
  3. PANODIL [Concomitant]
     Active Substance: ACETAMINOPHEN
     Indication: PAIN
     Dosage: 665 MG, TID
     Route: 048
  4. PREDNISOLON [Concomitant]
     Active Substance: PREDNISOLONE
     Indication: IMMUNOSUPPRESSION
     Dosage: 25 MG, QD
     Route: 048
     Dates: start: 20150703
  5. PANTOPRAZOLE [Concomitant]
     Active Substance: PANTOPRAZOLE SODIUM
     Indication: PRODUCT USED FOR UNKNOWN INDICATION
     Dosage: 40 MG, QD
     Route: 048
  6. UNIKALK BASIC [Concomitant]
     Indication: PRODUCT USED FOR UNKNOWN INDICATION
     Dosage: 1 DF, BID
     Route: 065
  7. CERTICAN [Suspect]
     Active Substance: EVEROLIMUS
     Dosage: 3 MG, BID
     Route: 048
     Dates: start: 20151012, end: 20151020
  8. ALENDRONATE [Concomitant]
     Active Substance: ALENDRONATE SODIUM
     Indication: OSTEOPOROSIS
     Dosage: 70 MG, QW
     Route: 048
  9. FURIX [Concomitant]
     Active Substance: FUROSEMIDE
     Indication: PRODUCT USED FOR UNKNOWN INDICATION
     Dosage: 40 MG, QD
     Route: 048
  10. MABLET [Concomitant]
     Indication: PRODUCT USED FOR UNKNOWN INDICATION
     Dosage: 360 MG, QD
     Route: 048
  11. CERTICAN [Suspect]
     Active Substance: EVEROLIMUS
     Indication: LUNG TRANSPLANT
     Dosage: 0.75 MG, BID
     Route: 048
     Dates: start: 20150911

REACTIONS (10)
  - Bronchiectasis [Unknown]
  - Organising pneumonia [Unknown]
  - Cholecystectomy [Unknown]
  - Fatigue [Unknown]
  - Interstitial lung disease [Fatal]
  - Food aversion [Unknown]
  - Acute respiratory distress syndrome [Unknown]
  - Cholecystitis [Unknown]
  - Diarrhoea [Unknown]
  - Pyrexia [Not Recovered/Not Resolved]

NARRATIVE: CASE EVENT DATE: 20151014
